FAERS Safety Report 8555047-0 (Version None)
Quarter: 2012Q3

REPORT INFORMATION
  Report Type: 
  Country: None (occurrence: None)
  Receive Date: 20120731
  Receipt Date: 20120717
  Transmission Date: 20120928
  Serious: No
  Sender: FDA-Public Use
  Company Number: US-BAYER-2012-072721

PATIENT

DRUGS (2)
  1. IBUPROFEN [Concomitant]
     Dosage: 9 DF, UNK
  2. ALEVE (CAPLET) [Suspect]
     Indication: PAIN
     Dosage: 5 DF, UNK
     Route: 048

REACTIONS (1)
  - PAIN [None]
